FAERS Safety Report 4616079-8 (Version None)
Quarter: 2005Q1

REPORT INFORMATION
  Report Type: 
  Country: None (occurrence: None)
  Receive Date: 20050321
  Receipt Date: 20050304
  Transmission Date: 20050727
  Serious: Yes (Other)
  Sender: FDA-Public Use
  Company Number: DSA_26048_2005

PATIENT
  Sex: Male

DRUGS (4)
  1. ATIVAN [Suspect]
     Dosage: 20 TAB ONCE PO
     Route: 048
     Dates: start: 20050201
  2. DIHYDROCODEINE BITARTRATE INJ [Suspect]
     Dates: start: 20050201
  3. ETHANOL [Suspect]
     Dates: start: 20050201
  4. HEROIN [Suspect]
     Dates: start: 20050201

REACTIONS (5)
  - ABNORMAL BEHAVIOUR [None]
  - ACCIDENTAL OVERDOSE [None]
  - AGGRESSION [None]
  - DEPRESSED LEVEL OF CONSCIOUSNESS [None]
  - VOMITING [None]
